FAERS Safety Report 18802169 (Version 1)
Quarter: 2021Q1

REPORT INFORMATION
  Report Type: Report from Study
  Country: CO (occurrence: CO)
  Receive Date: 20210128
  Receipt Date: 20210128
  Transmission Date: 20210419
  Serious: Yes (Other)
  Sender: FDA-Public Use
  Company Number: NVSC2020CO239796

PATIENT
  Sex: Male
  Weight: 62 kg

DRUGS (4)
  1. PREDNISOLONE. [Concomitant]
     Active Substance: PREDNISOLONE
     Indication: MYALGIA
     Dosage: 5 MG, QD (DAILY) (STARTED APPROXIMATELY ONE MONTH AND HALF)
     Route: 048
  2. VOTRIENT [Suspect]
     Active Substance: PAZOPANIB HYDROCHLORIDE
     Indication: SOFT TISSUE SARCOMA
     Dosage: 800 MG, QD
     Route: 048
     Dates: start: 20190722
  3. VOTRIENT [Suspect]
     Active Substance: PAZOPANIB HYDROCHLORIDE
     Dosage: 400 MG, Q24H (APPROXIMATELY 2 YEARS AGO)
     Route: 048
  4. LEVOTHYROXINE. [Concomitant]
     Active Substance: LEVOTHYROXINE
     Indication: HYPOTHYROIDISM
     Dosage: 75 UG, QD (DAILY) (STARTED MORE THAN 3 YEARS AGO)
     Route: 048

REACTIONS (5)
  - Dry skin [Unknown]
  - Pruritus [Unknown]
  - Hypotension [Unknown]
  - Diarrhoea [Unknown]
  - Hair colour changes [Unknown]
